FAERS Safety Report 14641637 (Version 1)
Quarter: 2018Q1

REPORT INFORMATION
  Report Type: Spontaneous
  Country: US (occurrence: US)
  Receive Date: 20180315
  Receipt Date: 20180315
  Transmission Date: 20180509
  Serious: Yes (Life-Threatening, Hospitalization)
  Sender: FDA-Public Use
  Company Number: US-SA-2018SA070496

PATIENT
  Age: 51 Year
  Sex: Female

DRUGS (4)
  1. HYDROCODONE W/ACETAMINOPHEN [Suspect]
     Active Substance: ACETAMINOPHEN\HYDROCODONE BITARTRATE
     Indication: SUICIDE ATTEMPT
     Route: 065
  2. CLONAZEPAM. [Suspect]
     Active Substance: CLONAZEPAM
     Indication: SUICIDE ATTEMPT
     Route: 065
  3. ZOLPIDEM [Suspect]
     Active Substance: ZOLPIDEM\ZOLPIDEM TARTRATE
     Indication: SUICIDE ATTEMPT
     Route: 065
  4. ACETAMINOPHEN. [Suspect]
     Active Substance: ACETAMINOPHEN
     Indication: SUICIDE ATTEMPT

REACTIONS (13)
  - Disturbance in attention [Recovered/Resolved]
  - Catatonia [Recovered/Resolved]
  - Speech disorder [Recovered/Resolved]
  - Muscle rigidity [Recovered/Resolved]
  - Toxic leukoencephalopathy [Recovered/Resolved]
  - Bradykinesia [Recovered/Resolved]
  - Movement disorder [Recovered/Resolved]
  - Gait disturbance [Recovered/Resolved]
  - Cognitive disorder [Recovered/Resolved]
  - Parkinsonian gait [Recovered/Resolved]
  - Coma [Recovered/Resolved]
  - Hashimoto^s encephalopathy [Recovered/Resolved]
  - Suicide attempt [Unknown]
